FAERS Safety Report 10203697 (Version 3)
Quarter: 2015Q3

REPORT INFORMATION
  Report Type: Spontaneous
  Country: FR (occurrence: FR)
  Receive Date: 20140529
  Receipt Date: 20150720
  Transmission Date: 20151125
  Serious: Yes (Hospitalization)
  Sender: FDA-Public Use
  Company Number: FR-JNJFOC-20140515635

PATIENT
  Age: 43 Year
  Sex: Female
  Weight: 58 kg

DRUGS (7)
  1. SIMPONI [Suspect]
     Active Substance: GOLIMUMAB
     Indication: ANKYLOSING SPONDYLITIS
     Route: 058
  2. METHOTREXATE [Suspect]
     Active Substance: METHOTREXATE
     Indication: ANKYLOSING SPONDYLITIS
     Dosage: FOR 5 YEARS
     Route: 048
     Dates: start: 2009
  3. ACTONEL [Concomitant]
     Active Substance: RISEDRONATE SODIUM
     Route: 065
  4. ENBREL [Suspect]
     Active Substance: ETANERCEPT
     Indication: ANKYLOSING SPONDYLITIS
     Route: 058
     Dates: start: 20110528, end: 20121123
  5. SPECIAFOLDINE [Concomitant]
     Active Substance: FOLIC ACID
     Route: 065
  6. SIMPONI [Suspect]
     Active Substance: GOLIMUMAB
     Indication: ANKYLOSING SPONDYLITIS
     Dosage: A YEAR AND HALF, APPROXIMATE NUMBER OF INJECTIONS: 15
     Route: 058
     Dates: start: 20121123
  7. CORTANCYL [Concomitant]
     Active Substance: PREDNISONE
     Route: 065

REACTIONS (1)
  - Medullary thyroid cancer [Recovering/Resolving]

NARRATIVE: CASE EVENT DATE: 201404
